FAERS Safety Report 12836808 (Version 2)
Quarter: 2017Q2

REPORT INFORMATION
  Report Type: Report from Study
  Country: US (occurrence: US)
  Receive Date: 20161011
  Receipt Date: 20170607
  Transmission Date: 20170830
  Serious: Yes (Hospitalization)
  Sender: FDA-Public Use
  Company Number: US-ACTELION-A-US2016-143474

PATIENT
  Age: 56 Year
  Sex: Female

DRUGS (12)
  1. THEOPHYLLINE [Concomitant]
     Active Substance: THEOPHYLLINE ANHYDROUS
  2. CLOPIDOGREL [Concomitant]
     Active Substance: CLOPIDOGREL BISULFATE
  3. TRACLEER [Suspect]
     Active Substance: BOSENTAN
     Indication: PULMONARY ARTERIAL HYPERTENSION
     Dosage: 125 MG, BID
     Route: 048
     Dates: start: 20160528
  4. IRON FERROUS [Concomitant]
  5. RISEDRONATE [Concomitant]
     Active Substance: RISEDRONATE SODIUM
  6. IPRATROPIUM [Concomitant]
     Active Substance: IPRATROPIUM
  7. VITAMIN D [Concomitant]
     Active Substance: CHOLECALCIFEROL
  8. AZELASTINE [Concomitant]
     Active Substance: AZELASTINE
  9. POTASSIUM CHLORIDE. [Concomitant]
     Active Substance: POTASSIUM CHLORIDE
  10. BIOTIN [Concomitant]
     Active Substance: BIOTIN
  11. FISH OIL [Concomitant]
     Active Substance: FISH OIL
  12. MULTIVITAMIN [Concomitant]
     Active Substance: VITAMINS

REACTIONS (4)
  - Dyspnoea [Unknown]
  - Asthma [Recovered/Resolved]
  - Memory impairment [Unknown]
  - Medication error [Unknown]

NARRATIVE: CASE EVENT DATE: 201609
